FAERS Safety Report 5627542-5 (Version None)
Quarter: 2008Q1

REPORT INFORMATION
  Report Type: 
  Country: None (occurrence: None)
  Receive Date: 20080215
  Receipt Date: 20071130
  Transmission Date: 20080703
  Serious: No
  Sender: FDA-Public Use
  Company Number: A0696775A

PATIENT
  Age: 63 Year
  Sex: Male

DRUGS (7)
  1. COREG CR [Suspect]
     Indication: ILL-DEFINED DISORDER
     Dosage: 10MG PER DAY
     Route: 048
     Dates: start: 20071101
  2. PLAVIX [Concomitant]
  3. PREDNISONE TAB [Concomitant]
  4. AMIODARONE HCL [Concomitant]
  5. LIPITOR [Concomitant]
  6. PROZAC [Concomitant]
  7. SPIRONOLACTONE [Concomitant]

REACTIONS (5)
  - ARTHRITIS [None]
  - DIZZINESS [None]
  - FEELING HOT [None]
  - HYPERHIDROSIS [None]
  - INSOMNIA [None]
